FAERS Safety Report 5232775-6 (Version None)
Quarter: 2007Q1

REPORT INFORMATION
  Report Type: 
  Country: None (occurrence: None)
  Receive Date: 20070206
  Receipt Date: 20070206
  Transmission Date: 20070707
  Serious: Yes (Other)
  Sender: FDA-Public Use
  Company Number: None

PATIENT
  Sex: Male
  Weight: 1.8144 kg

DRUGS (2)
  1. TERBUTALINE SULFATE [Suspect]
     Indication: PREMATURE LABOUR
     Dates: start: 20000701, end: 20000824
  2. TERBUTALINE SULFATE [Suspect]

REACTIONS (5)
  - ASTHMA [None]
  - AUTISM SPECTRUM DISORDER [None]
  - DRUG EXPOSURE DURING PREGNANCY [None]
  - PNEUMONIA [None]
  - SPEECH DISORDER DEVELOPMENTAL [None]
